FAERS Safety Report 10067158 (Version 1)
Quarter: 2014Q2

REPORT INFORMATION
  Report Type: Spontaneous
  Country: US (occurrence: None)
  Receive Date: 20140408
  Receipt Date: 20140408
  Transmission Date: 20141212
  Serious: Yes (Other)
  Sender: FDA-Public Use
  Company Number: None

PATIENT
  Age: 86 Year
  Sex: Female
  Weight: 76.66 kg

DRUGS (4)
  1. LANTUS SOLOSTAR [Suspect]
     Indication: TYPE 2 DIABETES MELLITUS
     Dosage: 35 UNITS ONCE PER DAY ONCE DAILY GIVEN INTO/UNDER THE SKIN
  2. MULTI VITAMIN [Concomitant]
  3. EYE VITAMINS [Concomitant]
  4. TYLENOL PM [Concomitant]

REACTIONS (4)
  - Product quality issue [None]
  - Product substitution issue [None]
  - Product quality issue [None]
  - Blood glucose increased [None]
